FAERS Safety Report 20145889 (Version 40)
Quarter: 2023Q4

REPORT INFORMATION
  Report Type: Report from Study
  Country: CA (occurrence: CA)
  Receive Date: 20211203
  Receipt Date: 20231229
  Transmission Date: 20240110
  Serious: Yes (Disabling, Other)
  Sender: FDA-Public Use
  Company Number: CA-TAKEDA-CA202021673

PATIENT
  Sex: Male
  Weight: 25 kg

DRUGS (32)
  1. IDURSULFASE [Suspect]
     Active Substance: IDURSULFASE
     Indication: Mucopolysaccharidosis II
     Dosage: 12 MILLIGRAM, 1/WEEK
     Route: 065
     Dates: start: 20191204
  2. IDURSULFASE [Suspect]
     Active Substance: IDURSULFASE
     Dosage: 12 MILLIGRAM, 1/WEEK
     Route: 065
  3. IDURSULFASE [Suspect]
     Active Substance: IDURSULFASE
     Dosage: 12 MILLIGRAM, 1/WEEK
     Route: 065
  4. IDURSULFASE [Suspect]
     Active Substance: IDURSULFASE
     Dosage: 12 MILLIGRAM, 1/WEEK
     Route: 065
  5. IDURSULFASE [Suspect]
     Active Substance: IDURSULFASE
     Dosage: 2 DOSAGE FORM, 1/WEEK
     Route: 065
  6. IDURSULFASE [Suspect]
     Active Substance: IDURSULFASE
     Dosage: 0.5 MILLIGRAM, 1/WEEK
     Route: 065
  7. IDURSULFASE [Suspect]
     Active Substance: IDURSULFASE
     Dosage: 13.2 MILLIGRAM, 1/WEEK
     Route: 065
  8. IDURSULFASE [Suspect]
     Active Substance: IDURSULFASE
     Dosage: 13.2 MILLIGRAM, 1/WEEK
     Route: 065
  9. IDURSULFASE [Suspect]
     Active Substance: IDURSULFASE
     Dosage: 13.2 MILLIGRAM, 1/WEEK
     Route: 065
  10. IDURSULFASE [Suspect]
     Active Substance: IDURSULFASE
     Dosage: 13.2 MILLIGRAM, 1/WEEK
     Route: 042
  11. IDURSULFASE [Suspect]
     Active Substance: IDURSULFASE
     Dosage: 2 DOSAGE FORM, 1/WEEK
     Route: 042
  12. IDURSULFASE [Suspect]
     Active Substance: IDURSULFASE
     Dosage: 13.2 MILLIGRAM, 1/WEEK
     Route: 042
  13. IDURSULFASE [Suspect]
     Active Substance: IDURSULFASE
     Dosage: 2 DOSAGE FORM, 1/WEEK
     Route: 042
  14. IDURSULFASE [Suspect]
     Active Substance: IDURSULFASE
     Dosage: 2 DOSAGE FORM, 1/WEEK
     Route: 050
  15. IDURSULFASE [Suspect]
     Active Substance: IDURSULFASE
     Dosage: 2 DOSAGE FORM, 1/WEEK
     Route: 050
  16. IDURSULFASE [Suspect]
     Active Substance: IDURSULFASE
     Dosage: 13.2 MILLIGRAM, 1/WEEK
     Route: 065
  17. IDURSULFASE [Suspect]
     Active Substance: IDURSULFASE
     Dosage: 2 DOSAGE FORM, 1/WEEK
     Route: 050
  18. IDURSULFASE [Suspect]
     Active Substance: IDURSULFASE
     Dosage: 2 DOSAGE FORM, 1/WEEK
     Route: 050
  19. IDURSULFASE [Suspect]
     Active Substance: IDURSULFASE
     Dosage: 2 DOSAGE FORM, 1/WEEK
     Route: 050
  20. IDURSULFASE [Suspect]
     Active Substance: IDURSULFASE
     Dosage: 12 MILLIGRAM, 1/WEEK
     Route: 050
  21. IDURSULFASE [Suspect]
     Active Substance: IDURSULFASE
     Dosage: 12 MILLIGRAM, 1/WEEK
     Route: 050
  22. IDURSULFASE [Suspect]
     Active Substance: IDURSULFASE
     Dosage: 12 MILLIGRAM, 1/WEEK
     Route: 042
  23. IDURSULFASE [Suspect]
     Active Substance: IDURSULFASE
     Dosage: 12 GRAM, 1/WEEK
     Route: 050
  24. IDURSULFASE [Suspect]
     Active Substance: IDURSULFASE
     Dosage: 12 MILLIGRAM, 1/WEEK
     Route: 042
  25. IDURSULFASE [Suspect]
     Active Substance: IDURSULFASE
     Dosage: 12 MILLIGRAM, 1/WEEK
     Route: 050
  26. IDURSULFASE [Suspect]
     Active Substance: IDURSULFASE
     Dosage: 12 MILLIGRAM, 1/WEEK
     Route: 042
  27. IDURSULFASE [Suspect]
     Active Substance: IDURSULFASE
     Dosage: 14 MILLIGRAM, 1/WEEK
     Route: 050
  28. BENADRYL [Suspect]
     Active Substance: DIPHENHYDRAMINE HYDROCHLORIDE
     Indication: Product used for unknown indication
     Dosage: 30 MILLIGRAM
     Route: 065
  29. ATIVAN [Suspect]
     Active Substance: LORAZEPAM
     Indication: Product used for unknown indication
     Dosage: UNK
     Route: 065
  30. ACETAMINOPHEN [Suspect]
     Active Substance: ACETAMINOPHEN
     Indication: Product used for unknown indication
     Dosage: UNK
     Route: 065
  31. ALLEGRA [Suspect]
     Active Substance: FEXOFENADINE HYDROCHLORIDE
     Indication: Product used for unknown indication
     Dosage: UNK
     Route: 065
  32. LORAZEPAM [Concomitant]
     Active Substance: LORAZEPAM
     Indication: Premedication
     Dosage: 1 MILLIGRAM
     Route: 065

REACTIONS (42)
  - Intellectual disability [Unknown]
  - Choking [Unknown]
  - Acne [Recovering/Resolving]
  - Pruritus [Recovering/Resolving]
  - Influenza [Not Recovered/Not Resolved]
  - Poor quality sleep [Unknown]
  - Agitation [Recovered/Resolved]
  - Respiratory rate decreased [Unknown]
  - Heart rate decreased [Recovered/Resolved]
  - Weight increased [Unknown]
  - Blood pressure increased [Recovered/Resolved]
  - Somnolence [Not Recovered/Not Resolved]
  - Blood pressure systolic increased [Unknown]
  - Toothache [Recovered/Resolved]
  - Body temperature decreased [Unknown]
  - COVID-19 [Recovered/Resolved]
  - Patient uncooperative [Recovered/Resolved]
  - Balance disorder [Not Recovered/Not Resolved]
  - Restlessness [Recovered/Resolved]
  - Tooth injury [Recovered/Resolved]
  - Respiratory tract infection viral [Recovered/Resolved]
  - Upper respiratory tract infection [Not Recovered/Not Resolved]
  - Productive cough [Not Recovered/Not Resolved]
  - Rhinorrhoea [Not Recovered/Not Resolved]
  - Salivary hypersecretion [Unknown]
  - Weight decreased [Unknown]
  - Dry skin [Not Recovered/Not Resolved]
  - Insomnia [Not Recovered/Not Resolved]
  - Gait disturbance [Not Recovered/Not Resolved]
  - Speech disorder [Not Recovered/Not Resolved]
  - Dysstasia [Not Recovered/Not Resolved]
  - Heart rate increased [Not Recovered/Not Resolved]
  - Visual impairment [Not Recovered/Not Resolved]
  - Fatigue [Unknown]
  - Tremor [Unknown]
  - Vomiting [Unknown]
  - Blood pressure decreased [Unknown]
  - Dizziness [Unknown]
  - Poor venous access [Recovering/Resolving]
  - Inappropriate schedule of product administration [Recovered/Resolved]
  - Wrong technique in product usage process [Unknown]
  - Product use complaint [Unknown]

NARRATIVE: CASE EVENT DATE: 20200101
